FAERS Safety Report 19790736 (Version 2)
Quarter: 2021Q4

REPORT INFORMATION
  Report Type: Spontaneous
  Country: JP (occurrence: JP)
  Receive Date: 20210906
  Receipt Date: 20211007
  Transmission Date: 20220303
  Serious: Yes (Hospitalization, Other)
  Sender: FDA-Public Use
  Company Number: JP-NBI-J202117196BIPI

PATIENT
  Age: 43 Year
  Sex: Male

DRUGS (5)
  1. JARDIANCE [Suspect]
     Active Substance: EMPAGLIFLOZIN
     Indication: Product used for unknown indication
     Route: 048
  2. AMLODIPINE BESYLATE\IRBESARTAN [Concomitant]
     Active Substance: AMLODIPINE BESYLATE\IRBESARTAN
     Indication: Product used for unknown indication
     Route: 065
  3. FLUNITRAZEPAM [Concomitant]
     Active Substance: FLUNITRAZEPAM
     Indication: Product used for unknown indication
     Route: 065
  4. TOFISOPAM [Concomitant]
     Active Substance: TOFISOPAM
     Indication: Product used for unknown indication
     Route: 065
  5. HANGEBYAKUJUTSUTEMMATO [ALISMA ORIENTALE TUBER;ASTRAGALUS SPP. ROOT;AT [Concomitant]
     Indication: Product used for unknown indication
     Route: 065

REACTIONS (2)
  - Ketoacidosis [Recovered/Resolved]
  - Dizziness [Recovered/Resolved]

NARRATIVE: CASE EVENT DATE: 20210801
